FAERS Safety Report 19051962 (Version 1)
Quarter: 2021Q1

REPORT INFORMATION
  Report Type: Spontaneous
  Country: JP (occurrence: JP)
  Receive Date: 20210324
  Receipt Date: 20210324
  Transmission Date: 20210420
  Serious: Yes (Other)
  Sender: FDA-Public Use
  Company Number: JP-PFIZER INC-2021267164

PATIENT

DRUGS (2)
  1. PROVERA [Suspect]
     Active Substance: MEDROXYPROGESTERONE ACETATE
     Dosage: UNK
     Dates: start: 20210309
  2. L^ESTROGEL [Suspect]
     Active Substance: ESTRADIOL
     Dosage: UNK
     Dates: start: 20210309

REACTIONS (7)
  - Chills [Unknown]
  - Thrombosis [Unknown]
  - Hypoaesthesia [Unknown]
  - Decreased appetite [Unknown]
  - Headache [Unknown]
  - Hunger [Unknown]
  - Dyspnoea [Unknown]

NARRATIVE: CASE EVENT DATE: 20210310
